FAERS Safety Report 6890373-2 (Version None)
Quarter: 2010Q3

REPORT INFORMATION
  Report Type: 
  Country: None (occurrence: None)
  Receive Date: 20100730
  Receipt Date: 20081014
  Transmission Date: 20110219
  Serious: No
  Sender: FDA-Public Use
  Company Number: US-PFIZER INC-2008087581

PATIENT
  Sex: Female
  Weight: 60.909 kg

DRUGS (3)
  1. LIPITOR [Suspect]
     Indication: BLOOD CHOLESTEROL INCREASED
  2. PROPRANOLOL [Concomitant]
     Indication: HYPERTENSION
  3. HYDROCHLOROTHIAZIDE [Concomitant]
     Indication: HYPERTENSION

REACTIONS (3)
  - MUSCULAR WEAKNESS [None]
  - UNEVALUABLE EVENT [None]
  - WRONG TECHNIQUE IN DRUG USAGE PROCESS [None]
